FAERS Safety Report 18500474 (Version 1)
Quarter: 2020Q4

REPORT INFORMATION
  Report Type: Spontaneous
  Country: US (occurrence: US)
  Receive Date: 20201112
  Receipt Date: 20201112
  Transmission Date: 20210114
  Serious: Yes (Death)
  Sender: FDA-Public Use
  Company Number: None

PATIENT
  Age: 64 Year
  Sex: Male
  Weight: 99 kg

DRUGS (20)
  1. FENTANYL. [Concomitant]
     Active Substance: FENTANYL
  2. FAMOTIDINE. [Concomitant]
     Active Substance: FAMOTIDINE
  3. CLINDAMYCIN PHOSPHATE. [Concomitant]
     Active Substance: CLINDAMYCIN PHOSPHATE
  4. FLUTICASONE PROPIONATE. [Concomitant]
     Active Substance: FLUTICASONE PROPIONATE
  5. FUROSEMIDE. [Concomitant]
     Active Substance: FUROSEMIDE
  6. DIPHENHYDRAMINE HCL [Concomitant]
     Active Substance: DIPHENHYDRAMINE HYDROCHLORIDE
  7. IRINOTECAN HCL [Concomitant]
     Active Substance: IRINOTECAN HYDROCHLORIDE
  8. OXYCODONE HYDROCHLORIDE. [Concomitant]
     Active Substance: OXYCODONE HYDROCHLORIDE
  9. OMEPRAZOLE. [Concomitant]
     Active Substance: OMEPRAZOLE
  10. BRAFTOVI [Suspect]
     Active Substance: ENCORAFENIB
     Indication: COLON CANCER
     Route: 048
     Dates: start: 20201012, end: 20201112
  11. LEUCOVORIN CALCIUM. [Concomitant]
     Active Substance: LEUCOVORIN CALCIUM
  12. PROCHLORPERAZINE MALEATE. [Concomitant]
     Active Substance: PROCHLORPERAZINE MALEATE
  13. ONDANSETRON [Concomitant]
     Active Substance: ONDANSETRON
  14. ATROPINE SULFATE. [Concomitant]
     Active Substance: ATROPINE SULFATE
  15. VECTIBIX [Concomitant]
     Active Substance: PANITUMUMAB
  16. LIDOCAINE-PRILOCAINE [Concomitant]
     Active Substance: LIDOCAINE\PRILOCAINE
  17. DOXYCYCLINE HYCLATE. [Concomitant]
     Active Substance: DOXYCYCLINE HYCLATE
  18. FLUOROURACIL. [Concomitant]
     Active Substance: FLUOROURACIL
  19. PROAIR HFA [Concomitant]
     Active Substance: ALBUTEROL SULFATE
  20. FLUTICASONE-SALMETEROL [Concomitant]

REACTIONS (1)
  - Death [None]

NARRATIVE: CASE EVENT DATE: 20201112
